FAERS Safety Report 10452817 (Version 1)
Quarter: 2014Q3

REPORT INFORMATION
  Report Type: Report from Study
  Country: ES (occurrence: ES)
  Receive Date: 20140915
  Receipt Date: 20140915
  Transmission Date: 20150326
  Serious: Yes (Other)
  Sender: FDA-Public Use
  Company Number: ES-BAYER-2014-131857

PATIENT
  Age: 89 Year
  Sex: Female

DRUGS (1)
  1. ADIRO 100 MG GASTRO-RESISTANT TABLETS, 30 TABLETS [Suspect]
     Active Substance: ASPIRIN
     Indication: CARDIOVASCULAR EVENT PROPHYLAXIS
     Dosage: 100 MG, QD, 0-1-0
     Route: 048
     Dates: start: 2014, end: 20140724

REACTIONS (1)
  - Iron deficiency anaemia [Recovering/Resolving]

NARRATIVE: CASE EVENT DATE: 2014
